FAERS Safety Report 7685535-0 (Version None)
Quarter: 2011Q3

REPORT INFORMATION
  Report Type: 
  Country: None (occurrence: None)
  Receive Date: 20110816
  Receipt Date: 20110810
  Transmission Date: 20111222
  Serious: Yes (Other)
  Sender: FDA-Public Use
  Company Number: AU-PFIZER INC-AUWYE768424AUG06

PATIENT
  Age: 64 Year
  Sex: Male

DRUGS (1)
  1. EFFEXOR XR [Suspect]
     Indication: DEPRESSION
     Dosage: 300 MG, 1X/DAY
     Route: 048
     Dates: start: 20040101

REACTIONS (4)
  - ARRHYTHMIA SUPRAVENTRICULAR [None]
  - CARDIOMEGALY [None]
  - SUPRAVENTRICULAR TACHYCARDIA [None]
  - CARDIOMYOPATHY [None]
